FAERS Safety Report 5029166-X (Version None)
Quarter: 2006Q2

REPORT INFORMATION
  Report Type: 
  Country: None (occurrence: None)
  Receive Date: 20060613
  Receipt Date: 20060531
  Transmission Date: 20061013
  Serious: Yes (Death)
  Sender: FDA-Public Use
  Company Number: 200603833

PATIENT
  Age: 84 Year
  Sex: Male

DRUGS (13)
  1. ALESION TABLET(EPINASTINE HYDROCHLORIDE) TABLET, 10MG [Suspect]
     Indication: PRURITUS
     Dosage: 20 MG, QD, ORAL
     Route: 048
     Dates: start: 20060308, end: 20060311
  2. AMLODIPINE BESYLATE [Concomitant]
  3. BLOPRESS (CANDESARTAN CILEXETIL) [Concomitant]
  4. DILTIAZEM HYDROCHLORIDE [Concomitant]
  5. ALDACTONE [Concomitant]
  6. LASIX /00032601/(FUROSEMIDE) [Concomitant]
  7. TICLOPIDINE HCL [Concomitant]
  8. GASTER /00706001/(FAMOTIDINE) [Concomitant]
  9. MUCOSOLVAN /00546001/(AMBROXOL) [Concomitant]
  10. HALCION [Concomitant]
  11. ALPRAZOLAM [Concomitant]
  12. BIOTIN [Concomitant]
  13. ALINAMIN F /00257801/(FURSULTIAMINE) [Concomitant]

REACTIONS (2)
  - DEPRESSED LEVEL OF CONSCIOUSNESS [None]
  - HEPATIC FAILURE [None]
